FAERS Safety Report 8134392-7 (Version None)
Quarter: 2012Q1

REPORT INFORMATION
  Report Type: 
  Country: None (occurrence: None)
  Receive Date: 20120209
  Receipt Date: 20120201
  Transmission Date: 20120608
  Serious: Yes (Other)
  Sender: FDA-Public Use
  Company Number: 2012-000014

PATIENT
  Age: 87 Year
  Sex: Female

DRUGS (3)
  1. ACTONEL [Suspect]
     Dosage: 35 MG, ONCE WEEKLY, ORAL
     Route: 048
  2. METFORMIN HCL [Concomitant]
  3. PREVACID [Concomitant]

REACTIONS (6)
  - PAIN IN JAW [None]
  - GINGIVAL PAIN [None]
  - MALIGNANT MELANOMA [None]
  - ORAL FUNGAL INFECTION [None]
  - DEVICE EXPULSION [None]
  - DIABETES MELLITUS [None]
